FAERS Safety Report 8829526 (Version 1)
Quarter: 2012Q4

REPORT INFORMATION
  Report Type: 
  Country: US (occurrence: US)
  Receive Date: 20121008
  Receipt Date: 20121008
  Transmission Date: 20130627
  Serious: No
  Sender: FDA-Public Use
  Company Number: US-TEVA-334824USA

PATIENT
  Sex: Female
  Weight: 45.4 kg

DRUGS (2)
  1. QVAR [Suspect]
     Indication: BRONCHITIS CHRONIC
     Dosage: 40 Microgram Daily;
     Route: 055
  2. QVAR [Suspect]
     Indication: ASTHMA

REACTIONS (2)
  - Candidiasis [Recovered/Resolved]
  - Respiratory tract congestion [Not Recovered/Not Resolved]
